FAERS Safety Report 18902479 (Version 3)
Quarter: 2023Q2

REPORT INFORMATION
  Report Type: Spontaneous
  Country: US (occurrence: US)
  Receive Date: 20210216
  Receipt Date: 20230417
  Transmission Date: 20230722
  Serious: No
  Sender: FDA-Public Use
  Company Number: US-BIOMARINAP-US-2021-134954

PATIENT

DRUGS (3)
  1. ALDURAZYME [Suspect]
     Active Substance: LARONIDASE
     Indication: Mucopolysaccharidosis
     Dosage: 26.1 MG, QW
     Route: 042
     Dates: start: 20100208
  2. ALDURAZYME [Suspect]
     Active Substance: LARONIDASE
     Dosage: 26.1 MG, QW
     Route: 042
     Dates: start: 20170717
  3. ALDURAZYME [Suspect]
     Active Substance: LARONIDASE
     Dosage: 26.1 MG, QW
     Route: 042
     Dates: start: 201901, end: 202101

REACTIONS (2)
  - Disease progression [Unknown]
  - Product use in unapproved indication [Unknown]

NARRATIVE: CASE EVENT DATE: 20100208
